FAERS Safety Report 8020236-0 (Version None)
Quarter: 2012Q1

REPORT INFORMATION
  Report Type: 
  Country: None (occurrence: None)
  Receive Date: 20120103
  Receipt Date: 20111222
  Transmission Date: 20120608
  Serious: Yes (Death, Hospitalization)
  Sender: FDA-Public Use
  Company Number: IE-ROCHE-1005879

PATIENT
  Sex: Male

DRUGS (15)
  1. LACTULOSE [Concomitant]
  2. PROCAL [Concomitant]
  3. MYCOSTATIN [Concomitant]
  4. ZOPICLONE [Concomitant]
  5. LYRICA [Concomitant]
  6. DURAGESIC-100 [Concomitant]
  7. MIDAZOLAM [Concomitant]
  8. RANIBIZUMAB [Suspect]
     Indication: AGE-RELATED MACULAR DEGENERATION
     Route: 050
     Dates: start: 20091014, end: 20091014
  9. FERROUS FUMARATE [Concomitant]
  10. MORPHINE SULFATE [Concomitant]
  11. HYOSCINE [Concomitant]
  12. NOZINAN (UNITED KINGDOM) [Concomitant]
  13. DIAMORPHINE [Concomitant]
  14. FORTISIP (UNITED KINGDOM) [Concomitant]
  15. SENNA [Concomitant]

REACTIONS (6)
  - RECTAL CANCER RECURRENT [None]
  - DUODENAL ULCER PERFORATION [None]
  - ABDOMINAL PAIN [None]
  - METASTASES TO LUNG [None]
  - METASTASES TO LIVER [None]
  - NAUSEA [None]
